FAERS Safety Report 16352050 (Version 1)
Quarter: 2019Q2

REPORT INFORMATION
  Report Type: Spontaneous
  Country: US (occurrence: US)
  Receive Date: 20190418
  Receipt Date: 20190418
  Transmission Date: 20190711
  Serious: No
  Sender: FDA-Public Use
  Company Number: None

PATIENT
  Age: 66 Year
  Sex: Female

DRUGS (4)
  1. MYCOPHENOLATE MOFETIL 500MG TABLET [Suspect]
     Active Substance: MYCOPHENOLATE MOFETIL
     Dosage: ?          OTHER DOSE:2TABLETS;?
     Route: 048
     Dates: start: 20180914
  2. FOLIC ACID. [Concomitant]
     Active Substance: FOLIC ACID
  3. CLONIDINE. [Concomitant]
     Active Substance: CLONIDINE
  4. LEVOTHYROXINE. [Concomitant]
     Active Substance: LEVOTHYROXINE

REACTIONS (2)
  - Peripheral swelling [None]
  - Therapy change [None]

NARRATIVE: CASE EVENT DATE: 20190418
